FAERS Safety Report 8476784-2 (Version None)
Quarter: 2012Q2

REPORT INFORMATION
  Report Type: 
  Country: None (occurrence: None)
  Receive Date: 20120628
  Receipt Date: 20120622
  Transmission Date: 20120825
  Serious: Yes (Hospitalization, Disabling, Other)
  Sender: FDA-Public Use
  Company Number: US-MERCK-1203USA03325

PATIENT
  Age: 62 Year
  Sex: Female

DRUGS (8)
  1. ALENDRONATE SODIUM [Suspect]
     Indication: OSTEOPOROSIS
     Route: 048
  2. FOSAMAX [Suspect]
     Route: 048
  3. FOSAMAX [Suspect]
     Indication: OSTEOPOROSIS
     Route: 048
     Dates: start: 19960101, end: 20080501
  4. FOSAMAX [Suspect]
     Indication: OSTEOPENIA
     Route: 048
     Dates: start: 19960101, end: 20080501
  5. ALENDRONATE SODIUM [Suspect]
     Indication: OSTEOPENIA
     Route: 048
  6. FOSAMAX PLUS D [Suspect]
     Indication: OSTEOPENIA
     Route: 048
     Dates: start: 19960101, end: 20080101
  7. FOSAMAX [Suspect]
     Route: 048
  8. FOSAMAX PLUS D [Suspect]
     Indication: OSTEOPOROSIS
     Route: 048
     Dates: start: 19960101, end: 20080101

REACTIONS (49)
  - BLADDER DISORDER [None]
  - MULTIPLE FRACTURES [None]
  - VITAMIN B12 DEFICIENCY [None]
  - SPINAL FRACTURE [None]
  - SCOLIOSIS [None]
  - PULMONARY GRANULOMA [None]
  - PRIMARY HYPOTHYROIDISM [None]
  - OESOPHAGITIS [None]
  - HAEMORRHOIDS [None]
  - BACK PAIN [None]
  - ENTEROCOCCAL INFECTION [None]
  - VITILIGO [None]
  - STRESS FRACTURE [None]
  - HYPERLIPIDAEMIA [None]
  - FEMUR FRACTURE [None]
  - ABSCESS SOFT TISSUE [None]
  - DEVICE COMPONENT ISSUE [None]
  - DEVICE FAILURE [None]
  - PANCREATITIS ACUTE [None]
  - OSTEOPOROSIS [None]
  - WOUND INFECTION STAPHYLOCOCCAL [None]
  - SKELETAL INJURY [None]
  - UTERINE DISORDER [None]
  - ALOPECIA [None]
  - APPENDIX DISORDER [None]
  - ARTHRALGIA [None]
  - FOOT FRACTURE [None]
  - FALL [None]
  - CELLULITIS [None]
  - CANDIDIASIS [None]
  - PERNICIOUS ANAEMIA [None]
  - HEADACHE [None]
  - OSTEOMYELITIS [None]
  - HAEMORRHAGE [None]
  - CARDIAC MURMUR [None]
  - KYPHOSIS [None]
  - DIVERTICULUM [None]
  - CATARACT [None]
  - SYSTEMIC LUPUS ERYTHEMATOSUS [None]
  - URINARY TRACT INFECTION [None]
  - OSTEOARTHRITIS [None]
  - INCISION SITE INFECTION [None]
  - GASTROOESOPHAGEAL REFLUX DISEASE [None]
  - DEPRESSION [None]
  - CHOLECYSTITIS ACUTE [None]
  - SOFT TISSUE INFECTION [None]
  - LOW TURNOVER OSTEOPATHY [None]
  - FRACTURE [None]
  - FRACTURE DELAYED UNION [None]
